FAERS Safety Report 4816454-2 (Version None)
Quarter: 2005Q4

REPORT INFORMATION
  Report Type: 
  Country: None (occurrence: None)
  Receive Date: 20051028
  Receipt Date: 20051012
  Transmission Date: 20060501
  Serious: Yes (Other)
  Sender: FDA-Public Use
  Company Number: GB-2005-013850

PATIENT
  Sex: 0

DRUGS (1)
  1. ULTRAVIST 150 [Suspect]
     Indication: ANGIOGRAM

REACTIONS (2)
  - CHOLANGITIS [None]
  - POST PROCEDURAL COMPLICATION [None]
